FAERS Safety Report 9929971 (Version 2)
Quarter: 2014Q1

REPORT INFORMATION
  Report Type: Spontaneous
  Country: US (occurrence: US)
  Receive Date: 20140227
  Receipt Date: 20140304
  Transmission Date: 20141002
  Serious: No
  Sender: FDA-Public Use
  Company Number: GXBR2014US000742

PATIENT
  Age: 64 Year
  Sex: Male
  Weight: 104.31 kg

DRUGS (1)
  1. BACITRACINE ZINC [Suspect]
     Indication: THERMAL BURN
     Dosage: 1 DF, BID
     Route: 061
     Dates: start: 200604

REACTIONS (2)
  - Toxic shock syndrome [Not Recovered/Not Resolved]
  - Rash [Not Recovered/Not Resolved]
